FAERS Safety Report 21322299 (Version 1)
Quarter: 2022Q3

REPORT INFORMATION
  Report Type: Report from Study
  Country: US (occurrence: US)
  Receive Date: 20220912
  Receipt Date: 20220912
  Transmission Date: 20221027
  Serious: Yes (Other)
  Sender: FDA-Public Use
  Company Number: US-TAKEDA-2022TUS062914

PATIENT
  Sex: Male

DRUGS (2)
  1. BRIGATINIB [Suspect]
     Active Substance: BRIGATINIB
     Indication: Neoplasm malignant
     Dosage: 90 MILLIGRAM, QD
     Route: 065
     Dates: start: 20220830
  2. BRIGATINIB [Suspect]
     Active Substance: BRIGATINIB
     Dosage: 180 MILLIGRAM, QD
     Route: 048

REACTIONS (3)
  - Metastases to bone [Unknown]
  - Nausea [Unknown]
  - Vomiting [Unknown]
